FAERS Safety Report 7107042-6 (Version None)
Quarter: 2010Q4

REPORT INFORMATION
  Report Type: 
  Country: None (occurrence: None)
  Receive Date: 20101116
  Receipt Date: 20100929
  Transmission Date: 20110411
  Serious: No
  Sender: FDA-Public Use
  Company Number: US-ABBOTT-10P-163-0674546-00

PATIENT
  Sex: Male
  Weight: 118.04 kg

DRUGS (2)
  1. SIMCOR [Suspect]
     Indication: BLOOD TRIGLYCERIDES INCREASED
     Dosage: 1000/? MG(TAKES1TABNOTSUREOFSTATINDOSE)OF STATIN DOSE)
     Dates: start: 20100925
  2. ASPIRIN [Concomitant]
     Indication: PRODUCT USED FOR UNKNOWN INDICATION
     Dosage: DAILY IN THE MORNING

REACTIONS (2)
  - FLUSHING [None]
  - SKIN BURNING SENSATION [None]
